FAERS Safety Report 24898343 (Version 1)
Quarter: 2025Q1

REPORT INFORMATION
  Report Type: Spontaneous
  Country: US (occurrence: US)
  Receive Date: 20250129
  Receipt Date: 20250129
  Transmission Date: 20250409
  Serious: Yes (Disabling, Other)
  Sender: AMGEN
  Company Number: US-AMGEN-USASP2025014809

PATIENT
  Age: 23 Year
  Sex: Male

DRUGS (3)
  1. RITUXIMAB [Suspect]
     Active Substance: RITUXIMAB
     Indication: Dermatomyositis
     Route: 065
  2. Immunoglobulin [Concomitant]
     Route: 040
  3. METHOTREXATE [Concomitant]
     Active Substance: METHOTREXATE

REACTIONS (5)
  - Neuralgia [Unknown]
  - Neuropathic pruritus [Unknown]
  - Small fibre neuropathy [Unknown]
  - Drug effective for unapproved indication [Unknown]
  - Off label use [Unknown]
